FAERS Safety Report 22598529 (Version 1)
Quarter: 2023Q2

REPORT INFORMATION
  Report Type: Report from Study
  Country: CA (occurrence: CA)
  Receive Date: 20230614
  Receipt Date: 20230614
  Transmission Date: 20230721
  Serious: Yes (Death)
  Sender: FDA-Public Use
  Company Number: CA-drreddys-CLI/CAN/23/0166586

PATIENT
  Age: 76 Year
  Sex: Male

DRUGS (1)
  1. AZACITIDINE [Suspect]
     Active Substance: AZACITIDINE
     Indication: Blastic plasmacytoid dendritic cell neoplasia
     Dosage: AZACITIDINE 75MG/M2 FOR 6 DAYS EVERY 28 DAYS

REACTIONS (3)
  - Death [Fatal]
  - Product use issue [Unknown]
  - Product use in unapproved indication [Unknown]
